FAERS Safety Report 12147927 (Version 1)
Quarter: 2016Q1

REPORT INFORMATION
  Report Type: Report from Study
  Country: ZA (occurrence: ZA)
  Receive Date: 20160304
  Receipt Date: 20160304
  Transmission Date: 20160526
  Serious: Yes (Hospitalization, Other)
  Sender: FDA-Public Use
  Company Number: PHHY2016ZA007619

PATIENT
  Age: 53 Year
  Sex: Male

DRUGS (2)
  1. GLIVEC [Suspect]
     Active Substance: IMATINIB MESYLATE
     Indication: CHRONIC MYELOID LEUKAEMIA
     Dosage: 400 MG, QD
     Route: 048
     Dates: start: 20141219
  2. TRAMADOL. [Concomitant]
     Active Substance: TRAMADOL
     Indication: PAIN
     Dosage: 50 MG, TID
     Route: 048
     Dates: start: 20141219, end: 20160203

REACTIONS (6)
  - Wound sepsis [Recovering/Resolving]
  - Sensory loss [Unknown]
  - Red blood cell macrocytes present [Unknown]
  - Localised infection [Recovering/Resolving]
  - Platelet count decreased [Unknown]
  - Polychromasia [Unknown]

NARRATIVE: CASE EVENT DATE: 201512
